FAERS Safety Report 7131020-4 (Version None)
Quarter: 2010Q4

REPORT INFORMATION
  Report Type: 
  Country: None (occurrence: None)
  Receive Date: 20101201
  Receipt Date: 20101129
  Transmission Date: 20110411
  Serious: Yes (Death, Life-Threatening)
  Sender: FDA-Public Use
  Company Number: B0682710A

PATIENT
  Sex: Male
  Weight: 87 kg

DRUGS (3)
  1. CHLORAMBUCIL [Suspect]
     Indication: CHRONIC LYMPHOCYTIC LEUKAEMIA
     Dosage: 52MG PER DAY
     Route: 065
     Dates: start: 20101011, end: 20101027
  2. MILURIT [Concomitant]
     Indication: PROPHYLAXIS
     Dosage: 300MG PER DAY
     Route: 048
     Dates: start: 20101008
  3. ENALAPRIL [Concomitant]
     Indication: HYPERTENSION
     Dosage: 40MG PER DAY
     Route: 048
     Dates: start: 19910101

REACTIONS (27)
  - ACUTE RESPIRATORY FAILURE [None]
  - ANAEMIA [None]
  - AORTIC ARTERIOSCLEROSIS [None]
  - AORTIC DILATATION [None]
  - ASPARTATE AMINOTRANSFERASE INCREASED [None]
  - BLOOD ALBUMIN DECREASED [None]
  - BLOOD ALKALINE PHOSPHATASE INCREASED [None]
  - BLOOD CREATININE INCREASED [None]
  - BLOOD LACTATE DEHYDROGENASE INCREASED [None]
  - BLOOD POTASSIUM DECREASED [None]
  - BLOOD SODIUM INCREASED [None]
  - BONE MARROW FAILURE [None]
  - BRAIN OEDEMA [None]
  - CEREBRAL VENTRICLE DILATATION [None]
  - CIRCULATORY COLLAPSE [None]
  - DILATATION VENTRICULAR [None]
  - ENDOCARDITIS [None]
  - ENTEROBACTER SEPSIS [None]
  - HYPOKINESIA [None]
  - HYPOPROTEINAEMIA [None]
  - INTRACARDIAC THROMBUS [None]
  - NEUTROPENIA [None]
  - PNEUMONIA [None]
  - PYREXIA [None]
  - RESPIRATORY FAILURE [None]
  - SKIN INFECTION [None]
  - VOLUME BLOOD DECREASED [None]
